FAERS Safety Report 7352955-3 (Version None)
Quarter: 2011Q1

REPORT INFORMATION
  Report Type: 
  Country: None (occurrence: None)
  Receive Date: 20110315
  Receipt Date: 20110307
  Transmission Date: 20110831
  Serious: Yes (Life-Threatening)
  Sender: FDA-Public Use
  Company Number: JP-ROCHE-762759

PATIENT
  Sex: Female
  Weight: 55 kg

DRUGS (14)
  1. LIPITOR [Concomitant]
     Route: 048
  2. DECADRON [Concomitant]
     Dosage: ROUTE: INTRAVENOUS (NOT OTHERWISE SPECIFIED).
     Route: 042
     Dates: start: 20110217, end: 20110217
  3. MEDROL [Suspect]
     Route: 048
  4. MUCOSTA [Concomitant]
     Route: 048
  5. NU-LOTAN [Concomitant]
     Route: 048
  6. FAMOTIDINE [Concomitant]
     Route: 048
  7. POLARAMINE [Concomitant]
     Dosage: ROUTE: INTRAVENOUS (NOT OTHERWISE SPECIFIED).
     Route: 042
     Dates: start: 20110217, end: 20110217
  8. AVASTIN [Suspect]
     Indication: COLON CANCER
     Route: 041
     Dates: start: 20110217, end: 20110217
  9. LAC-B [Concomitant]
     Dosage: DOSE FORM: POWDERED MEDICINE.
     Route: 048
  10. CLARITIN [Concomitant]
     Route: 048
  11. ELPLAT [Suspect]
     Dosage: NOTE: DOSAGE IS UNCERTAIN
     Route: 041
     Dates: start: 20110217, end: 20110217
  12. FEROTYM [Concomitant]
     Route: 048
  13. EVISTA [Concomitant]
     Dosage: REPORTED AS: EVISTA TAB 60MG.
     Route: 048
  14. ZOFRAN [Concomitant]
     Dosage: ROUTE: INTRAVENOUS (NOT OTHERWISE SPECIFIED).
     Route: 042
     Dates: start: 20110217, end: 20110217

REACTIONS (2)
  - LARYNGEAL OEDEMA [None]
  - DYSPNOEA [None]
